FAERS Safety Report 23184592 (Version 1)
Quarter: 2023Q4

REPORT INFORMATION
  Report Type: Spontaneous
  Country: None (occurrence: CN)
  Receive Date: 20231115
  Receipt Date: 20231115
  Transmission Date: 20240110
  Serious: Yes (Life-Threatening, Other)
  Sender: FDA-Public Use
  Company Number: CN-Jiangsu Hansoh Pharmaceutical Co., Ltd-2148297

PATIENT
  Age: 59 Year
  Weight: 51 kg

DRUGS (2)
  1. GEMCITABINE [Suspect]
     Active Substance: GEMCITABINE
     Indication: Squamous cell carcinoma of lung
     Route: 041
     Dates: start: 20231014, end: 20231014
  2. LOBAPLATIN [Suspect]
     Active Substance: LOBAPLATIN
     Route: 041
     Dates: start: 20231014, end: 20231014

REACTIONS (3)
  - Myelosuppression [Recovering/Resolving]
  - Epistaxis [Unknown]
  - Haemoptysis [Unknown]

NARRATIVE: CASE EVENT DATE: 20231019
